FAERS Safety Report 12139232 (Version 1)
Quarter: 2016Q1

REPORT INFORMATION
  Report Type: Report from Study
  Country: BR (occurrence: BR)
  Receive Date: 20160302
  Receipt Date: 20160302
  Transmission Date: 20160526
  Serious: Yes (Hospitalization)
  Sender: FDA-Public Use
  Company Number: BR-ROCHE-1621520

PATIENT
  Age: 64 Year
  Sex: Female
  Weight: 56 kg

DRUGS (6)
  1. ABLOK PLUS [Concomitant]
     Active Substance: ATENOLOL\CHLORTHALIDONE
     Indication: HYPERTENSION
     Route: 065
  2. MABTHERA [Suspect]
     Active Substance: RITUXIMAB
     Indication: RHEUMATOID ARTHRITIS
     Route: 042
     Dates: start: 20150210, end: 20150815
  3. MABTHERA [Suspect]
     Active Substance: RITUXIMAB
     Dosage: LAST DOSE RECEIVED ON 15/AUG/2015
     Route: 042
  4. FLANAX CAPS [Concomitant]
     Active Substance: NAPROXEN
     Indication: INFLAMMATION
  5. TANDRILAX [Concomitant]
     Active Substance: ACETAMINOPHEN\CAFFEINE\CARISOPRODOL\DICLOFENAC SODIUM
     Indication: INFLAMMATION
  6. CIPRO [Concomitant]
     Active Substance: CIPROFLOXACIN HYDROCHLORIDE
     Route: 065

REACTIONS (6)
  - Swelling [Recovered/Resolved]
  - Cerebrovascular accident [Recovering/Resolving]
  - Urinary tract infection [Recovered/Resolved]
  - Pyrexia [Recovered/Resolved]
  - Arthralgia [Recovered/Resolved]
  - Coma [Recovered/Resolved]

NARRATIVE: CASE EVENT DATE: 201512
